FAERS Safety Report 19505472 (Version 1)
Quarter: 2021Q3

REPORT INFORMATION
  Report Type: Spontaneous
  Country: US (occurrence: US)
  Receive Date: 20210707
  Receipt Date: 20210707
  Transmission Date: 20211014
  Serious: No
  Sender: FDA-Public Use
  Company Number: None

PATIENT
  Age: 69 Year
  Sex: Female
  Weight: 71.22 kg

DRUGS (2)
  1. CAPECITABINE 500MG [Suspect]
     Active Substance: CAPECITABINE
     Indication: RECTOSIGMOID CANCER
     Dosage: ?          OTHER DOSE:3 X 500MG TAB;?
     Route: 048
     Dates: start: 20210617
  2. CAPECITABINE 150MG [Suspect]
     Active Substance: CAPECITABINE
     Indication: RECTOSIGMOID CANCER
     Dosage: ?          OTHER DOSE:1 X 150MG TAB;?
     Route: 048
     Dates: start: 20210617

REACTIONS (1)
  - Diarrhoea [None]
